FAERS Safety Report 7106306-X (Version None)
Quarter: 2010Q4

REPORT INFORMATION
  Report Type: 
  Country: None (occurrence: None)
  Receive Date: 20101116
  Receipt Date: 20101105
  Transmission Date: 20110411
  Serious: Yes (Other)
  Sender: FDA-Public Use
  Company Number: US-JNJFOC-20101102475

PATIENT
  Sex: Female
  Weight: 66.23 kg

DRUGS (5)
  1. REMICADE [Suspect]
     Indication: CROHN'S DISEASE
     Dosage: EVERY 9-10 WEEKS
     Route: 042
  2. PHENERGAN [Concomitant]
     Indication: CROHN'S DISEASE
     Route: 048
  3. PHENERGAN [Concomitant]
     Route: 054
  4. HYDROCODONE [Concomitant]
     Indication: CROHN'S DISEASE
     Dosage: DOSE OF TABLET 7.5/500 MG
     Route: 048
  5. NEXIUM [Concomitant]
     Indication: GASTROOESOPHAGEAL REFLUX DISEASE
     Dosage: 7.5 - 500 MG
     Route: 048

REACTIONS (8)
  - ASTHMA [None]
  - DRUG SPECIFIC ANTIBODY PRESENT [None]
  - EAR INFECTION [None]
  - INFECTION [None]
  - LYMPHADENOPATHY [None]
  - PHARYNGITIS [None]
  - RASH [None]
  - SWELLING [None]
